FAERS Safety Report 23588012 (Version 2)
Quarter: 2024Q1

REPORT INFORMATION
  Report Type: Spontaneous
  Country: BR (occurrence: BR)
  Receive Date: 20240301
  Receipt Date: 20240320
  Transmission Date: 20240410
  Serious: Yes (Other)
  Sender: FDA-Public Use
  Company Number: BR-TAKEDA-2023TUS034369

PATIENT
  Sex: Female

DRUGS (3)
  1. DEXILANT [Suspect]
     Active Substance: DEXLANSOPRAZOLE
     Indication: Product used for unknown indication
     Dosage: UNK
     Route: 065
  2. VONOPRAZAN FUMARATE [Suspect]
     Active Substance: VONOPRAZAN FUMARATE
     Indication: Gastritis
     Dosage: UNK
     Route: 065
  3. DOMPERIDONE [Concomitant]
     Active Substance: DOMPERIDONE
     Dosage: UNK

REACTIONS (19)
  - Gastritis erosive [Unknown]
  - Haematochezia [Unknown]
  - Malaise [Unknown]
  - Product odour abnormal [Unknown]
  - Product colour issue [Unknown]
  - Burning sensation [Unknown]
  - Allergic reaction to excipient [Unknown]
  - Product use issue [Unknown]
  - Product prescribing issue [Unknown]
  - Off label use [Unknown]
  - Gastritis [Unknown]
  - Dyspepsia [Unknown]
  - Gastrooesophageal reflux disease [Unknown]
  - Insomnia [Unknown]
  - Somnolence [Unknown]
  - Hypertension [Unknown]
  - Flatulence [Unknown]
  - Abdominal discomfort [Unknown]
  - Nausea [Unknown]
